FAERS Safety Report 18639364 (Version 2)
Quarter: 2020Q4

REPORT INFORMATION
  Report Type: Report from Study
  Country: MX (occurrence: MX)
  Receive Date: 20201219
  Receipt Date: 20201223
  Transmission Date: 20210114
  Serious: Yes (Death)
  Sender: FDA-Public Use
  Company Number: NVSC2020MX337649

PATIENT
  Sex: Female
  Weight: 48 kg

DRUGS (1)
  1. EXFORGE HCT [Suspect]
     Active Substance: AMLODIPINE BESYLATE\HYDROCHLOROTHIAZIDE\VALSARTAN
     Indication: BLOOD PRESSURE MEASUREMENT
     Dosage: 1 DF, QD (APPROXIMATELY A YEAR AGO)
     Route: 048

REACTIONS (3)
  - Pulmonary oedema [Fatal]
  - Feeling abnormal [Unknown]
  - Thyroid disorder [Fatal]
